FAERS Safety Report 4768588-9 (Version None)
Quarter: 2005Q3

REPORT INFORMATION
  Report Type: 
  Country: None (occurrence: None)
  Receive Date: 20050914
  Receipt Date: 20050907
  Transmission Date: 20060218
  Serious: Yes (Death, Hospitalization)
  Sender: FDA-Public Use
  Company Number: US-JNJFOC-20050902154

PATIENT
  Age: 70 Year
  Sex: Male

DRUGS (2)
  1. ACETAMINOPHEN [Suspect]
     Route: 048
  2. ACETAMINOPHEN [Suspect]
     Indication: DRUG USE FOR UNKNOWN INDICATION
     Dosage: 2-3 TABLETS DAILY
     Route: 048

REACTIONS (3)
  - DRUG TOXICITY [None]
  - HEPATIC FUNCTION ABNORMAL [None]
  - MEDICATION ERROR [None]
